FAERS Safety Report 6928359-1 (Version None)
Quarter: 2010Q3

REPORT INFORMATION
  Report Type: 
  Country: None (occurrence: None)
  Receive Date: 20100817
  Receipt Date: 20100810
  Transmission Date: 20110219
  Serious: Yes (Death, Hospitalization)
  Sender: FDA-Public Use
  Company Number: DK-MERCK-1008USA01478

PATIENT
  Age: 58 Year
  Sex: Male

DRUGS (2)
  1. PRIMAXIN [Suspect]
     Indication: BURKHOLDERIA PSEUDOMALLEI INFECTION
     Route: 065
  2. PRIMAXIN [Suspect]
     Route: 065

REACTIONS (1)
  - DRUG INEFFECTIVE [None]
